FAERS Safety Report 7294453-1 (Version None)
Quarter: 2011Q1

REPORT INFORMATION
  Report Type: 
  Country: None (occurrence: None)
  Receive Date: 20110216
  Receipt Date: 20110210
  Transmission Date: 20110831
  Serious: Yes (Other)
  Sender: FDA-Public Use
  Company Number: US-BIOGENIDEC-2010BI014899

PATIENT
  Age: 23 Year
  Sex: Female

DRUGS (3)
  1. NICODERM CQ [Concomitant]
     Dates: start: 20100801
  2. PRENATAL VITAMINS [Concomitant]
     Dates: start: 20100601
  3. TYSABRI [Suspect]
     Indication: MULTIPLE SCLEROSIS
     Route: 042
     Dates: start: 20080307, end: 20100310

REACTIONS (2)
  - FOETAL HEART RATE ABNORMAL [None]
  - PREGNANCY [None]
